FAERS Safety Report 14583571 (Version 1)
Quarter: 2018Q1

REPORT INFORMATION
  Report Type: Spontaneous
  Country: US (occurrence: US)
  Receive Date: 20180227
  Receipt Date: 20180227
  Transmission Date: 20180509
  Serious: No
  Sender: FDA-Public Use
  Company Number: None

PATIENT
  Age: 45 Year
  Sex: Female
  Weight: 99 kg

DRUGS (1)
  1. CHLORAPREP [Suspect]
     Active Substance: CHLORHEXIDINE GLUCONATE\ISOPROPYL ALCOHOL
     Indication: THERAPEUTIC SKIN CARE TOPICAL
     Dosage: ?          OTHER FREQUENCY:USED TO PREP FOR S;?
     Route: 061
     Dates: start: 20180223, end: 20180223

REACTIONS (4)
  - Rash [None]
  - Application site pruritus [None]
  - Drug ineffective [None]
  - Application site rash [None]

NARRATIVE: CASE EVENT DATE: 20180224
